FAERS Safety Report 10743107 (Version 2)
Quarter: 2015Q1

REPORT INFORMATION
  Report Type: Report from Study
  Country: BE (occurrence: BE)
  Receive Date: 20150127
  Receipt Date: 20150311
  Transmission Date: 20150721
  Serious: Yes (Other)
  Sender: FDA-Public Use
  Company Number: BE-ABBVIE-15P-013-1337286-00

PATIENT
  Sex: Male
  Weight: 54 kg

DRUGS (3)
  1. LEVODOPA/CARBIDOPA [Suspect]
     Active Substance: CARBIDOPA\LEVODOPA
     Dosage: AM: 6ML; CD: 2.6ML/H FOR 16HRS; ED: 1ML
     Route: 050
     Dates: start: 20140901
  2. PROLOPA HBS [Concomitant]
     Indication: PARKINSON^S DISEASE
     Dosage: FORM STRENGTH: 100MG/25MG
     Route: 048
  3. LEVODOPA/CARBIDOPA [Suspect]
     Active Substance: CARBIDOPA\LEVODOPA
     Indication: PARKINSON^S DISEASE
     Dosage: AM: 6ML; CD: 2.8ML/H FOR 16HRS; ED: 1ML
     Route: 050
     Dates: start: 20120124, end: 20140901

REACTIONS (1)
  - Chronic lymphocytic leukaemia [Unknown]
